FAERS Safety Report 9800131 (Version 1)
Quarter: 2014Q1

REPORT INFORMATION
  Report Type: Spontaneous
  Country: US (occurrence: US)
  Receive Date: 20140106
  Receipt Date: 20140106
  Transmission Date: 20141002
  Serious: No
  Sender: FDA-Public Use
  Company Number: US-TARO-2013P1020924

PATIENT
  Sex: Female
  Weight: 65.77 kg

DRUGS (7)
  1. HYDROCORTISONE CREAM USP 2.5% [Suspect]
     Indication: HAEMORRHOIDS
     Route: 061
     Dates: start: 201310
  2. HYDROCORTISONE CREAM USP 2.5% [Suspect]
     Indication: HAEMORRHOIDS
     Route: 061
     Dates: start: 201310
  3. HYDROCORTISONE CREAM USP 2.5% [Suspect]
     Indication: HAEMORRHOIDS
     Route: 061
  4. HYDROCORTISONE CREAM USP 2.5% [Suspect]
     Indication: HAEMORRHOIDS
     Route: 061
  5. HYDROCORTISONE CREAM USP 2.5% [Suspect]
     Indication: HAEMORRHOIDS
     Route: 061
     Dates: end: 2013
  6. HYDROCORTISONE CREAM USP 2.5% [Suspect]
     Indication: HAEMORRHOIDS
     Route: 061
     Dates: end: 2013
  7. UNSPECIFIED PROBIOTIC [Concomitant]

REACTIONS (1)
  - Dizziness [Recovered/Resolved]
